FAERS Safety Report 6154895-4 (Version None)
Quarter: 2009Q2

REPORT INFORMATION
  Report Type: 
  Country: None (occurrence: None)
  Receive Date: 20090414
  Receipt Date: 20090407
  Transmission Date: 20091009
  Serious: Yes (Hospitalization)
  Sender: FDA-Public Use
  Company Number: FR-PFIZER INC-2009194083

PATIENT

DRUGS (8)
  1. TAHOR [Suspect]
     Dosage: 10 MG, 1X/DAY
     Route: 048
  2. ALTIZIDE AND SPIRONOLACTONE [Suspect]
     Dosage: 75 MG, 1X/DAY
     Route: 048
  3. DI-ANTALVIC [Suspect]
     Dosage: 1 DF, 1X/DAY
     Route: 048
  4. NOROXIN [Suspect]
     Dosage: 400 MG, 2X/DAY
     Route: 048
  5. BISOPROLOL [Suspect]
  6. NUCTALON [Suspect]
     Dosage: 1 DF, 1X/DAY
     Route: 048
  7. FERROUS SULFATE TAB [Concomitant]
  8. DAFALGAN [Concomitant]

REACTIONS (1)
  - FALL [None]
